FAERS Safety Report 7462857-X (Version None)
Quarter: 2011Q2

REPORT INFORMATION
  Report Type: 
  Country: None (occurrence: None)
  Receive Date: 20110506
  Receipt Date: 20101208
  Transmission Date: 20111010
  Serious: Yes (Hospitalization, Other)
  Sender: FDA-Public Use
  Company Number: US-BAYER-201015387NA

PATIENT
  Age: 24 Year
  Sex: Female
  Weight: 57 kg

DRUGS (5)
  1. IBUPROFEN [Concomitant]
     Dosage: UNK
     Dates: start: 20080226
  2. ZITHROMAX [Concomitant]
     Dosage: UNK
     Dates: start: 20080201
  3. ALBUTEROL [Concomitant]
     Indication: DYSPNOEA
  4. ZITHROMAX [Concomitant]
  5. YASMIN [Suspect]
     Indication: PRODUCT USED FOR UNKNOWN INDICATION
     Dosage: UNK UNK, UNK
     Route: 048
     Dates: start: 20040211, end: 20080201

REACTIONS (2)
  - PULMONARY EMBOLISM [None]
  - MENTAL DISORDER [None]
